FAERS Safety Report 6219831-0 (Version None)
Quarter: 2009Q2

REPORT INFORMATION
  Report Type: 
  Country: None (occurrence: None)
  Receive Date: 20090609
  Receipt Date: 20090601
  Transmission Date: 20091009
  Serious: Yes (Other)
  Sender: FDA-Public Use
  Company Number: ZA-B.I. PHARMACEUTICALS,INC./RIDGEFIELD-2009-BP-06758BP

PATIENT
  Age: 36 Year
  Sex: Female

DRUGS (3)
  1. VIRAMUNE [Suspect]
     Indication: HIV INFECTION
     Dosage: 400MG
     Route: 048
     Dates: start: 20081009
  2. COMBIVIR [Suspect]
     Indication: HIV INFECTION
     Dosage: 900MG
     Route: 048
     Dates: start: 20060201
  3. EFAVIRENZ [Suspect]
     Indication: HIV INFECTION
     Dosage: 600MG
     Route: 048
     Dates: start: 20060201

REACTIONS (1)
  - STILLBIRTH [None]
